FAERS Safety Report 15138514 (Version 2)
Quarter: 2018Q3

REPORT INFORMATION
  Report Type: Spontaneous
  Country: US (occurrence: US)
  Receive Date: 20180713
  Receipt Date: 20180810
  Transmission Date: 20181010
  Serious: No
  Sender: FDA-Public Use
  Company Number: US-ASTRAZENECA-2018SE79715

PATIENT
  Age: 447 Day
  Sex: Male
  Weight: 10 kg

DRUGS (2)
  1. PROAIR/ALBUTEROL [Concomitant]
     Indication: INHALATION THERAPY
     Dosage: AS REQUIRED
     Dates: start: 20180205
  2. SYMBICORT [Suspect]
     Active Substance: BUDESONIDE\FORMOTEROL FUMARATE DIHYDRATE
     Indication: ASTHMA
     Dosage: 80/4.5 MCG, TWO PUFFS IN THE MORNING, AND TWO PUFFS AT NIGHT
     Route: 055
     Dates: start: 20180205

REACTIONS (5)
  - Dental caries [Not Recovered/Not Resolved]
  - Tooth disorder [Not Recovered/Not Resolved]
  - Off label use of device [Not Recovered/Not Resolved]
  - Off label use [Not Recovered/Not Resolved]
  - Drug administered to patient of inappropriate age [Unknown]

NARRATIVE: CASE EVENT DATE: 20180205
